FAERS Safety Report 4680847-7 (Version None)
Quarter: 2005Q2

REPORT INFORMATION
  Report Type: 
  Country: None (occurrence: None)
  Receive Date: 20050603
  Receipt Date: 20050524
  Transmission Date: 20051028
  Serious: Yes (Hospitalization)
  Sender: FDA-Public Use
  Company Number: US-BRISTOL-MYERS SQUIBB COMPANY-12980108

PATIENT
  Age: 82 Year
  Sex: Male
  Weight: 79 kg

DRUGS (6)
  1. COUMADIN [Suspect]
     Dates: end: 20050516
  2. PLAVIX [Concomitant]
     Indication: PROPHYLAXIS
     Dates: start: 20050516
  3. ASPIRIN [Concomitant]
     Indication: PROPHYLAXIS
     Dates: start: 20000101
  4. LOPRESSOR [Concomitant]
  5. MYLANTA [Concomitant]
  6. PHAZYME [Concomitant]

REACTIONS (1)
  - TRANSIENT ISCHAEMIC ATTACK [None]
